FAERS Safety Report 21239871 (Version 4)
Quarter: 2023Q2

REPORT INFORMATION
  Report Type: Spontaneous
  Country: US (occurrence: US)
  Receive Date: 20220822
  Receipt Date: 20230530
  Transmission Date: 20230722
  Serious: No
  Sender: FDA-Public Use
  Company Number: US-SA-SAC20220822000443

PATIENT
  Sex: Female

DRUGS (2)
  1. KEVZARA [Suspect]
     Active Substance: SARILUMAB
     Indication: Rheumatoid arthritis
     Dosage: 200 MG, QOW
     Route: 058
     Dates: start: 202205
  2. CIMZIA [Suspect]
     Active Substance: CERTOLIZUMAB PEGOL
     Dosage: UNK

REACTIONS (7)
  - Fatigue [Unknown]
  - COVID-19 [Unknown]
  - Nasopharyngitis [Unknown]
  - Influenza [Unknown]
  - Surgery [Unknown]
  - Product use in unapproved indication [Unknown]
  - Drug ineffective [Unknown]
